FAERS Safety Report 22393425 (Version 1)
Quarter: 2023Q2

REPORT INFORMATION
  Report Type: Report from Study
  Country: US (occurrence: US)
  Receive Date: 20230601
  Receipt Date: 20230601
  Transmission Date: 20230722
  Serious: Yes (Other)
  Sender: FDA-Public Use
  Company Number: US-ABBVIE-5186625

PATIENT
  Sex: Female

DRUGS (1)
  1. HUMIRA [Suspect]
     Active Substance: ADALIMUMAB
     Indication: Psoriatic arthropathy
     Dosage: CITRATE FREE ; FORM STRENGTH: 40 MILLIGRAM
     Route: 058
     Dates: start: 20210102

REACTIONS (3)
  - Blindness [Unknown]
  - Arthropathy [Unknown]
  - Memory impairment [Unknown]
